FAERS Safety Report 17025794 (Version 2)
Quarter: 2020Q1

REPORT INFORMATION
  Report Type: Spontaneous
  Country: US (occurrence: US)
  Receive Date: 20191113
  Receipt Date: 20200211
  Transmission Date: 20200409
  Serious: Yes (Other)
  Sender: FDA-Public Use
  Company Number: US-PFIZER INC-2019488811

PATIENT
  Age: 72 Year
  Sex: Female
  Weight: 69.39 kg

DRUGS (23)
  1. WAL ZYR NOS [Concomitant]
     Active Substance: CETIRIZINE HYDROCHLORIDE OR KETOTIFEN FUMARATE
     Dosage: 10 MG, 1X/DAY
  2. VITAMIN D [ERGOCALCIFEROL] [Concomitant]
     Active Substance: ERGOCALCIFEROL
     Dosage: 6000 IU, DAILY
     Route: 048
  3. LIALDA [Concomitant]
     Active Substance: MESALAMINE
     Indication: COLITIS ULCERATIVE
     Dosage: 2.4 G, 1X/DAY [EVERY MORNING]
     Route: 048
  4. DELTASONE [PREDNISOLONE] [Concomitant]
     Dosage: 20 MG, UNK [1 TAB 3 X DAY FOR 3 DAYS, THEN 1 TAB 2 X DAY FOR 3 DAYS, THEN 1 TAB 1 X DAY FOR 5 DAYS]
  5. ROBITUSSIN DM [Concomitant]
     Active Substance: DEXTROMETHORPHAN HYDROBROMIDE\GUAIFENESIN
     Indication: COUGH
     Dosage: 5 ML, AS NEEDED [TAKE 5 MLS BY MOUTH 3 (THREE) TIMES DAILY]
     Route: 048
  6. LEVOTHROID [Concomitant]
     Active Substance: LEVOTHYROXINE SODIUM
     Dosage: 50 UG, 1X/DAY
     Route: 048
  7. TYLENOL [Concomitant]
     Active Substance: ACETAMINOPHEN
     Indication: PYREXIA
     Dosage: 500 MG, AS NEEDED [EVERY 6 (SIX) HOURS]
     Route: 048
  8. XELJANZ [Suspect]
     Active Substance: TOFACITINIB CITRATE
     Indication: PSORIATIC ARTHROPATHY
     Dosage: 5 MG, 2X/DAY
     Route: 048
  9. ZITHROMAX [Concomitant]
     Active Substance: AZITHROMYCIN DIHYDRATE
     Dosage: UNK [TAKE 2 TABLETS (500 MG) ON DAY 1, FOLLOWED BY 1 TABLET (250 MG) ONCE DAILY ON DAYS 2 THROUGH 5]
  10. WELLBUTRIN XL [Concomitant]
     Active Substance: BUPROPION HYDROCHLORIDE
     Dosage: 150 MG, 1X/DAY [EVERY MORNING]
     Route: 048
  11. VITAMIN C [Concomitant]
     Active Substance: ASCORBIC ACID
     Dosage: 1000 MG, DAILY
     Route: 048
  12. COZAAR [Concomitant]
     Active Substance: LOSARTAN POTASSIUM
     Indication: BLOOD PRESSURE ABNORMAL
     Dosage: 100 MG, DAILY
     Route: 048
  13. XANAX [Concomitant]
     Active Substance: ALPRAZOLAM
     Indication: ANXIETY
     Dosage: UNK, AS NEEDED [TAKE 1/2 TO 1 TABLET BY MOUTH 2 TO 3 TIMES DAILY ]
     Route: 048
  14. PROLIA [Concomitant]
     Active Substance: DENOSUMAB
     Dosage: 60 MG, UNK [60 MG INTO THE SKIN EVERY 6 (SIX) MONTHS]
  15. SYNTHROID [Concomitant]
     Active Substance: LEVOTHYROXINE SODIUM
     Dosage: 50 UG, 1X/DAY
     Route: 048
  16. KLOR-CON [Concomitant]
     Active Substance: POTASSIUM CHLORIDE
     Dosage: 10 MEQ, 2X/DAY
     Route: 048
  17. VENTOLIN HFA [Concomitant]
     Active Substance: ALBUTEROL SULFATE
     Indication: DYSPNOEA
  18. DESYREL [Concomitant]
     Active Substance: TRAZODONE HYDROCHLORIDE
     Indication: SLEEP DISORDER
     Dosage: 150 MG, UNK [TAKE 1/2 TO 1 TABLET 1 TO 2 HOURS BEFORE BEDTIME]
  19. VENTOLIN HFA [Concomitant]
     Active Substance: ALBUTEROL SULFATE
     Indication: WHEEZING
     Dosage: UNK, AS NEEDED [INHALE 2 PUFFS INTO THE LUNGS EVERY 4 (FOUR) HOURS]
     Route: 055
  20. CYANOCOBALAMIN. [Concomitant]
     Active Substance: CYANOCOBALAMIN
     Dosage: 2000 UG, DAILY
     Route: 048
  21. MUCINEX [Concomitant]
     Active Substance: GUAIFENESIN
     Indication: COUGH
     Dosage: 600 MG, AS NEEDED [TAKE 600 MG BY MOUTH 2 (TWO) TIMES DAILY]
     Route: 048
  22. MUCINEX [Concomitant]
     Active Substance: GUAIFENESIN
     Indication: PRODUCTIVE COUGH
  23. CRESTOR [Concomitant]
     Active Substance: ROSUVASTATIN CALCIUM
     Dosage: 10 MG, 1X/DAY
     Route: 048

REACTIONS (14)
  - Oropharyngeal pain [Unknown]
  - Sluggishness [Unknown]
  - Viral upper respiratory tract infection [Recovered/Resolved]
  - Sinusitis [Recovered/Resolved]
  - Nasopharyngitis [Recovered/Resolved]
  - Middle ear effusion [Unknown]
  - Cough [Unknown]
  - Headache [Unknown]
  - Rhinorrhoea [Unknown]
  - Upper respiratory tract infection bacterial [Recovered/Resolved]
  - Eye irritation [Unknown]
  - Nasal congestion [Unknown]
  - Back pain [Unknown]
  - Dyspnoea [Unknown]

NARRATIVE: CASE EVENT DATE: 20191108
